FAERS Safety Report 6666047-X (Version None)
Quarter: 2010Q2

REPORT INFORMATION
  Report Type: 
  Country: None (occurrence: None)
  Receive Date: 20100402
  Receipt Date: 20100326
  Transmission Date: 20101027
  Serious: Yes (Other)
  Sender: FDA-Public Use
  Company Number: A0853123A

PATIENT
  Sex: Female
  Weight: 63 kg

DRUGS (2)
  1. SERETIDE [Suspect]
     Indication: ASTHMA
     Dosage: 1PUFF TWICE PER DAY
     Route: 055
     Dates: start: 20100107, end: 20100321
  2. LINSEED OIL [Concomitant]

REACTIONS (3)
  - DRY THROAT [None]
  - FACIAL PALSY [None]
  - HEADACHE [None]
